FAERS Safety Report 20832659 (Version 4)
Quarter: 2022Q3

REPORT INFORMATION
  Report Type: Report from Study
  Country: US (occurrence: US)
  Receive Date: 20220516
  Receipt Date: 20220825
  Transmission Date: 20221027
  Serious: Yes (Other)
  Sender: FDA-Public Use
  Company Number: US-BEH-2022145466

PATIENT
  Age: 56 Year
  Sex: Female

DRUGS (10)
  1. HIZENTRA [Suspect]
     Active Substance: HUMAN IMMUNOGLOBULIN G
     Indication: Primary immunodeficiency syndrome
     Dosage: 4 GRAM, QW
     Route: 058
     Dates: start: 20220509
  2. HIZENTRA [Suspect]
     Active Substance: HUMAN IMMUNOGLOBULIN G
     Indication: Immunodeficiency common variable
     Dosage: 8 GRAM, QW
     Route: 058
     Dates: start: 20220519
  3. HIZENTRA [Suspect]
     Active Substance: HUMAN IMMUNOGLOBULIN G
     Dosage: UNK
     Route: 058
     Dates: start: 20220813
  4. KLONOPIN [Suspect]
     Active Substance: CLONAZEPAM
     Dosage: UNK
     Dates: end: 20220516
  5. ATIVAN [Concomitant]
     Active Substance: LORAZEPAM
     Dosage: UNK, HS
     Dates: start: 20220516
  6. ASPIRIN [Concomitant]
     Active Substance: ASPIRIN
     Dosage: UNK, QD
     Dates: end: 202207
  7. CULTURELLE [Concomitant]
     Active Substance: LACTOBACILLUS RHAMNOSUS
  8. DIPHENHYDRAMINE [Concomitant]
     Active Substance: DIPHENHYDRAMINE
  9. FISH OIL [Concomitant]
     Active Substance: FISH OIL
  10. LIDOCAINE\PRILOCAINE [Concomitant]
     Active Substance: LIDOCAINE\PRILOCAINE

REACTIONS (16)
  - Infusion site erythema [Recovered/Resolved]
  - No adverse event [Unknown]
  - Wrong technique in product usage process [Unknown]
  - Dysuria [Unknown]
  - Vulvovaginal burning sensation [Unknown]
  - Vulvovaginal mycotic infection [Unknown]
  - Infusion site haemorrhage [Not Recovered/Not Resolved]
  - Skin fragility [Not Recovered/Not Resolved]
  - Impaired healing [Not Recovered/Not Resolved]
  - Scar [Not Recovered/Not Resolved]
  - Infusion site haemorrhage [Not Recovered/Not Resolved]
  - Infusion site vesicles [Not Recovered/Not Resolved]
  - Skin exfoliation [Not Recovered/Not Resolved]
  - Contusion [Not Recovered/Not Resolved]
  - Haemorrhage [Not Recovered/Not Resolved]
  - Contusion [Not Recovered/Not Resolved]

NARRATIVE: CASE EVENT DATE: 20220501
